FAERS Safety Report 8816569 (Version 1)
Quarter: 2012Q4

REPORT INFORMATION
  Report Type: Spontaneous
  Country: US (occurrence: None)
  Receive Date: 20121001
  Receipt Date: 20121001
  Transmission Date: 20130627
  Serious: No
  Sender: FDA-Public Use
  Company Number: None

PATIENT
  Age: 80 Year
  Sex: Male

DRUGS (1)
  1. CORDRAN [Suspect]
     Dosage: Cordran 4mcg tape apply to skin on 12 off 12hrs 1 wk on 1 wk off
     Route: 061
     Dates: start: 20110913, end: 20110929

REACTIONS (2)
  - Laceration [None]
  - Wound [None]
